FAERS Safety Report 17718056 (Version 1)
Quarter: 2020Q2

REPORT INFORMATION
  Report Type: Spontaneous
  Country: TW (occurrence: TW)
  Receive Date: 20200428
  Receipt Date: 20200428
  Transmission Date: 20200714
  Serious: Yes (Other)
  Sender: FDA-Public Use
  Company Number: NVSC2020TW110963

PATIENT
  Age: 30 Year
  Sex: Male

DRUGS (11)
  1. MYCOPHENOLATE MOFETIL. [Suspect]
     Active Substance: MYCOPHENOLATE MOFETIL
     Indication: ORGAN TRANSPLANT
     Dosage: UNK
     Route: 065
  2. TACROLIMUS. [Suspect]
     Active Substance: TACROLIMUS
     Indication: IMMUNOSUPPRESSANT DRUG THERAPY
     Dosage: 8-10 NG/ML IN BLOOD SERUM
     Route: 065
  3. TACROLIMUS. [Suspect]
     Active Substance: TACROLIMUS
     Dosage: 5-8 NG/ML IN BLOOD SERUM
     Route: 065
  4. CLOBETASOL [Suspect]
     Active Substance: CLOBETASOL
     Indication: IMMUNOSUPPRESSANT DRUG THERAPY
  5. PROTOPIC [Suspect]
     Active Substance: TACROLIMUS
     Indication: ORGAN TRANSPLANT
     Dosage: UNK UNK, BID
     Route: 061
  6. PREDNISONE. [Suspect]
     Active Substance: PREDNISONE
     Indication: ORGAN TRANSPLANT
     Dosage: 60 MG
     Route: 065
  7. PROTOPIC [Suspect]
     Active Substance: TACROLIMUS
     Indication: IMMUNOSUPPRESSANT DRUG THERAPY
  8. PREDNISONE. [Suspect]
     Active Substance: PREDNISONE
     Indication: IMMUNOSUPPRESSANT DRUG THERAPY
     Dosage: 10 MG
     Route: 065
  9. MYCOPHENOLATE MOFETIL. [Suspect]
     Active Substance: MYCOPHENOLATE MOFETIL
     Indication: IMMUNOSUPPRESSANT DRUG THERAPY
  10. TACROLIMUS. [Suspect]
     Active Substance: TACROLIMUS
     Indication: ORGAN TRANSPLANT
     Dosage: 10-15 NG/ML IN BLOOD SERUM
     Route: 065
  11. CLOBETASOL [Suspect]
     Active Substance: CLOBETASOL
     Indication: ORGAN TRANSPLANT
     Dosage: UNK UNK, BID
     Route: 061

REACTIONS (1)
  - Skin graft rejection [Recovered/Resolved]
